FAERS Safety Report 6263435 (Version 26)
Quarter: 2014Q1

REPORT INFORMATION
  Report Type: Spontaneous
  Country: US (occurrence: US)
  Receive Date: 20070316
  Receipt Date: 20140131
  Transmission Date: 20141002
  Serious: Yes (Disabling, Other)
  Sender: FDA-Public Use
  Company Number: PHEH2007US02889

PATIENT
  Age: 48 Year
  Sex: Female
  Weight: 80.73 kg

DRUGS (20)
  1. AREDIA [Suspect]
     Indication: METASTASES TO BONE
     Route: 042
  2. AREDIA [Suspect]
     Indication: BREAST CANCER STAGE IV
  3. ZOMETA [Suspect]
     Indication: METASTASES TO BONE
     Dosage: 4 MG, UNK
     Route: 041
     Dates: start: 200211, end: 200509
  4. ZOMETA [Suspect]
     Indication: BREAST CANCER METASTATIC
  5. TAMOXIFEN [Concomitant]
     Indication: NEOPLASM MALIGNANT
     Dosage: 20 MG, QD
     Route: 048
  6. XANAX [Concomitant]
     Indication: ANXIETY
     Dosage: 0.5 MG, TID
     Route: 048
  7. PAXIL [Concomitant]
     Indication: DEPRESSION
     Dosage: 20 MG, QD
     Route: 048
  8. WELLBUTRIN [Concomitant]
     Indication: DEPRESSION
     Dosage: 100 MG, TID
     Route: 048
  9. RESTORIL [Concomitant]
     Indication: SLEEP DISORDER
     Dosage: 15 MG, QHS
     Route: 048
  10. STEROIDS NOS [Concomitant]
     Dates: start: 2005
  11. LUPRON [Concomitant]
  12. ORAL CONTRACEPTIVE NOS [Concomitant]
  13. AMBIEN [Concomitant]
  14. MULTIVIT [Concomitant]
  15. CALCIUM [Concomitant]
  16. ASA [Concomitant]
  17. METRONIDAZOLE [Concomitant]
  18. BISPHOSPHONATES [Concomitant]
     Dates: start: 200211, end: 200509
  19. AMOXYCILLIN [Concomitant]
  20. VESICARE [Concomitant]

REACTIONS (97)
  - Osteonecrosis of jaw [Unknown]
  - Tooth abscess [Unknown]
  - Pain in jaw [Unknown]
  - Sinus headache [Unknown]
  - Dysgeusia [Unknown]
  - Oral discharge [Unknown]
  - Bone disorder [Unknown]
  - Oroantral fistula [Unknown]
  - Osteomyelitis [Unknown]
  - Gingivitis [Unknown]
  - Biopsy bone [Unknown]
  - Temporomandibular joint syndrome [Unknown]
  - Osteitis [Unknown]
  - Loose tooth [Unknown]
  - Bone loss [Unknown]
  - Periodontal disease [Unknown]
  - Tooth impacted [Unknown]
  - Positron emission tomogram abnormal [Unknown]
  - General physical health deterioration [Unknown]
  - Pain [Unknown]
  - Anxiety [Unknown]
  - Decreased interest [Unknown]
  - Dental fistula [Unknown]
  - Pyrexia [Recovering/Resolving]
  - Sinus congestion [Recovering/Resolving]
  - Upper respiratory tract infection [Unknown]
  - Oral pain [Unknown]
  - Intervertebral disc degeneration [Unknown]
  - Spinal osteoarthritis [Unknown]
  - Intervertebral disc space narrowing [Unknown]
  - Depression [Unknown]
  - Atelectasis [Unknown]
  - Cerebral small vessel ischaemic disease [Unknown]
  - Arteriosclerosis [Unknown]
  - Actinomycosis [Unknown]
  - Trismus [Unknown]
  - Metastases to bone [Unknown]
  - Bone cancer [Unknown]
  - Periodontitis [Unknown]
  - Metastases to central nervous system [Unknown]
  - Lipogranuloma [Unknown]
  - Chest wall mass [Unknown]
  - Fat necrosis [Unknown]
  - Viral infection [Unknown]
  - Skin papilloma [Unknown]
  - Sweat gland tumour [Unknown]
  - Actinic keratosis [Unknown]
  - Haemangioma [Unknown]
  - Solar lentigo [Unknown]
  - Seborrhoeic keratosis [Unknown]
  - Granuloma annulare [Unknown]
  - Ecchymosis [Unknown]
  - Haematochezia [Unknown]
  - Lymphoedema [Recovering/Resolving]
  - Coccydynia [Unknown]
  - Stress urinary incontinence [Unknown]
  - Oedema peripheral [Unknown]
  - Headache [Unknown]
  - Swelling [Unknown]
  - Myalgia [Not Recovered/Not Resolved]
  - Arthralgia [Unknown]
  - Fatigue [Unknown]
  - Erythema [Unknown]
  - Skin hyperpigmentation [Unknown]
  - Vitamin B12 deficiency [Unknown]
  - Anaemia [Unknown]
  - Sinus bradycardia [Unknown]
  - Abdominal pain [Unknown]
  - Hypercholesterolaemia [Unknown]
  - Vulvovaginal dryness [Unknown]
  - Vulvovaginal pruritus [Unknown]
  - Urinary incontinence [Unknown]
  - Haemorrhoids [Unknown]
  - Sinusitis [Unknown]
  - Hot flush [Unknown]
  - Vulvovaginal candidiasis [Unknown]
  - Affective disorder [Unknown]
  - Pain in extremity [Unknown]
  - Tenosynovitis [Unknown]
  - Synovial cyst [Unknown]
  - Gastrooesophageal reflux disease [Unknown]
  - Uterine haemorrhage [Unknown]
  - Lung disorder [Unknown]
  - Uterine leiomyoma [Unknown]
  - Endometrial atrophy [Unknown]
  - Endometrial disorder [Unknown]
  - Cervix inflammation [Unknown]
  - Uterine cervical squamous metaplasia [Unknown]
  - Osteosclerosis [Unknown]
  - Bone lesion [Unknown]
  - Vertigo [Unknown]
  - Cervical dysplasia [Unknown]
  - Chest pain [Unknown]
  - Dyspnoea exertional [Unknown]
  - Cough [Unknown]
  - Constipation [Unknown]
  - Diarrhoea [Unknown]
